FAERS Safety Report 8342288-0 (Version None)
Quarter: 2012Q2

REPORT INFORMATION
  Report Type: 
  Country: None (occurrence: None)
  Receive Date: 20120507
  Receipt Date: 20120502
  Transmission Date: 20120825
  Serious: Yes (Hospitalization)
  Sender: FDA-Public Use
  Company Number: FR-MERCK-1205FRA00002

PATIENT
  Age: 71 Year
  Sex: Male
  Weight: 75 kg

DRUGS (9)
  1. ATORVASTATIN CALCIUM [Concomitant]
     Route: 065
  2. CLOPIDOGREL BISULFATE [Concomitant]
     Route: 065
  3. JANUVIA [Suspect]
     Indication: TYPE 2 DIABETES MELLITUS
     Route: 048
     Dates: end: 20120317
  4. FENTANYL [Concomitant]
     Route: 065
  5. BISOPROLOL FUMARATE [Concomitant]
     Route: 065
  6. PERINDOPRIL [Concomitant]
     Route: 065
  7. BORTEZOMIB [Suspect]
     Indication: MULTIPLE MYELOMA
     Route: 042
     Dates: start: 20120316, end: 20120316
  8. METFORMIN PAMOATE [Suspect]
     Route: 048
  9. VALACYCLOVIR HYDROCHLORIDE [Concomitant]
     Route: 065

REACTIONS (1)
  - HYPOGLYCAEMIA [None]
